FAERS Safety Report 13074389 (Version 1)
Quarter: 2016Q4

REPORT INFORMATION
  Report Type: Spontaneous
  Country: BR (occurrence: BR)
  Receive Date: 20161230
  Receipt Date: 20161230
  Transmission Date: 20170207
  Serious: Yes (Other)
  Sender: FDA-Public Use
  Company Number: BR-009507513-1612BRA013647

PATIENT
  Age: 54 Year
  Sex: Female
  Weight: 47 kg

DRUGS (2)
  1. LOSARTAN POTASSIUM. [Suspect]
     Active Substance: LOSARTAN POTASSIUM
     Indication: HYPERTENSION
     Dosage: 100 MG (2 TABLETS), QD
     Route: 048
     Dates: start: 2014
  2. ARCOXIA [Suspect]
     Active Substance: ETORICOXIB
     Indication: JOINT INJURY
     Dosage: 90 MG (1 TABLET), QD
     Route: 048
     Dates: start: 20161221, end: 20161223

REACTIONS (3)
  - Hypertension [Not Recovered/Not Resolved]
  - Therapeutic response decreased [Not Recovered/Not Resolved]
  - Arrhythmia [Not Recovered/Not Resolved]

NARRATIVE: CASE EVENT DATE: 20161221
